FAERS Safety Report 5317026-6 (Version None)
Quarter: 2007Q1

REPORT INFORMATION
  Report Type: 
  Country: None (occurrence: None)
  Receive Date: 20070130
  Receipt Date: 20061107
  Transmission Date: 20070707
  Serious: Yes (Other)
  Sender: FDA-Public Use
  Company Number: 200616085US

PATIENT
  Age: 42 Year
  Sex: Female
  Weight: 68.18 kg

DRUGS (9)
  1. KETEK [Suspect]
     Indication: EAR PAIN
     Dosage: 400 MG QD PO
     Route: 048
     Dates: start: 20060526, end: 20060528
  2. KETEK [Suspect]
     Indication: PHARYNGITIS
     Dosage: 400 MG QD PO
     Route: 048
     Dates: start: 20060526, end: 20060528
  3. KETEK [Suspect]
     Indication: SINUSITIS
     Dosage: 400 MG QD PO
     Route: 048
     Dates: start: 20060526, end: 20060528
  4. ORAL CONTRACEPTIVE NOS [Concomitant]
  5. POLY HIST DM [Concomitant]
  6. GLYCERIN [Concomitant]
  7. DOCUSATE SODIUM (DULCOLAX /00061602/) [Concomitant]
  8. METHYLPREDNISOLONE ACETATE (DEPO-MEDROL) [Concomitant]
  9. DEXAMETHASONE (DECADRON /00016001) [Concomitant]

REACTIONS (12)
  - ANXIETY [None]
  - CHEST PAIN [None]
  - EAR DISORDER [None]
  - FORMICATION [None]
  - HYPERSENSITIVITY [None]
  - HYPERVENTILATION [None]
  - MYALGIA [None]
  - PRURITUS GENERALISED [None]
  - PRURITUS GENITAL [None]
  - THROAT TIGHTNESS [None]
  - VULVOVAGINAL DISCOMFORT [None]
  - VULVOVAGINAL MYCOTIC INFECTION [None]
